FAERS Safety Report 6551009-3 (Version None)
Quarter: 2010Q1

REPORT INFORMATION
  Report Type: 
  Country: None (occurrence: None)
  Receive Date: 20100122
  Receipt Date: 20100122
  Transmission Date: 20100710
  Serious: Yes (Other)
  Sender: FDA-Public Use
  Company Number: None

PATIENT
  Age: 54 Year
  Sex: Male
  Weight: 78.5 kg

DRUGS (2)
  1. HYDROCHLOROTHIAZIDE [Suspect]
     Indication: HYPERTENSION
     Dosage: 25 MG EVERY DAY PO
     Route: 048
     Dates: start: 20070207, end: 20091022
  2. HYDROCHLOROTHIAZIDE [Suspect]

REACTIONS (3)
  - ERYTHEMA MULTIFORME [None]
  - PHOTOSENSITIVITY REACTION [None]
  - SEBORRHOEIC DERMATITIS [None]
